FAERS Safety Report 13551045 (Version 1)
Quarter: 2017Q2

REPORT INFORMATION
  Report Type: Spontaneous
  Country: US (occurrence: US)
  Receive Date: 20170516
  Receipt Date: 20170516
  Transmission Date: 20170830
  Serious: Yes (Other)
  Sender: FDA-Public Use
  Company Number: US-ABBVIE-17K-163-1973713-00

PATIENT
  Age: 50 Year
  Sex: Male

DRUGS (2)
  1. HUMIRA [Suspect]
     Active Substance: ADALIMUMAB
     Indication: PSORIASIS
     Dosage: STOPPED END OF 2015
     Route: 058
     Dates: start: 2014, end: 2015
  2. HUMIRA [Suspect]
     Active Substance: ADALIMUMAB
     Route: 058
     Dates: start: 2016

REACTIONS (10)
  - Neck pain [Recovering/Resolving]
  - Road traffic accident [Recovered/Resolved]
  - Incorrect dose administered [Unknown]
  - Meniscus injury [Unknown]
  - Ear neoplasm [Not Recovered/Not Resolved]
  - Back pain [Recovering/Resolving]
  - Psoriasis [Recovered/Resolved]
  - Arthralgia [Recovering/Resolving]
  - Device issue [Unknown]
  - Concussion [Recovering/Resolving]

NARRATIVE: CASE EVENT DATE: 2014
